FAERS Safety Report 14790281 (Version 2)
Quarter: 2018Q2

REPORT INFORMATION
  Report Type: Spontaneous
  Country: US (occurrence: US)
  Receive Date: 20180423
  Receipt Date: 20180518
  Transmission Date: 20180711
  Serious: Yes (Other)
  Sender: FDA-Public Use
  Company Number: US-SHENZHEN TECHDOW PHARMACEUTICAL CO. LTD-US-2018TEC0000019

PATIENT

DRUGS (7)
  1. HEPARIN SODIUM INJECTION USP, CONTAINING PARABENS, WITHOUT NACL [Suspect]
     Active Substance: HEPARIN SODIUM
     Indication: LYME DISEASE
     Dosage: UNK, 10000 U/ML
     Route: 042
     Dates: start: 20170603, end: 20180410
  2. VITAMIN C [Concomitant]
     Active Substance: ASCORBIC ACID
     Indication: PRODUCT USED FOR UNKNOWN INDICATION
     Dosage: UNK
  3. NYSTATIN. [Concomitant]
     Active Substance: NYSTATIN
     Indication: PRODUCT USED FOR UNKNOWN INDICATION
     Dosage: UNK
  4. NAC                                /00082801/ [Concomitant]
     Indication: PRODUCT USED FOR UNKNOWN INDICATION
     Dosage: UNK
  5. GLUTATHIONE [Concomitant]
     Active Substance: GLUTATHIONE
     Indication: PRODUCT USED FOR UNKNOWN INDICATION
     Dosage: UNK
  6. MAGNESIUM [Concomitant]
     Active Substance: MAGNESIUM
     Indication: PRODUCT USED FOR UNKNOWN INDICATION
     Dosage: UNK
  7. HEPARIN SODIUM INJECTION USP, CONTAINING PARABENS, WITHOUT NACL [Suspect]
     Active Substance: HEPARIN SODIUM
     Indication: AUTOIMMUNE DISORDER

REACTIONS (2)
  - Product preparation error [Unknown]
  - Anaphylactic reaction [Recovered/Resolved]

NARRATIVE: CASE EVENT DATE: 20180410
